FAERS Safety Report 7716777-3 (Version None)
Quarter: 2011Q3

REPORT INFORMATION
  Report Type: 
  Country: None (occurrence: None)
  Receive Date: 20110829
  Receipt Date: 20110817
  Transmission Date: 20111222
  Serious: Yes (Hospitalization)
  Sender: FDA-Public Use
  Company Number: BR-ELI_LILLY_AND_COMPANY-BR201108005747

PATIENT
  Sex: Female
  Weight: 68 kg

DRUGS (7)
  1. GEMCITABINE HYDROCHLORIDE [Suspect]
     Indication: BREAST CANCER METASTATIC
     Dosage: 1250 MG/M2, OTHER
     Route: 042
     Dates: start: 20100706, end: 20101214
  2. AMITRIPTILINA [Concomitant]
     Indication: DEPRESSION
     Dosage: UNK
     Dates: start: 20100818
  3. AMIODARONE HCL [Concomitant]
     Indication: TACHYCARDIA
     Dosage: UNK
     Dates: start: 20101125
  4. CODEINE [Concomitant]
     Indication: PAIN IN EXTREMITY
     Dosage: UNK
     Dates: start: 20100916
  5. MINERAL OIL EMULSION [Concomitant]
     Indication: CONSTIPATION
     Dosage: UNK
     Dates: start: 20100916
  6. OMEPRAZOLE [Concomitant]
     Indication: ABDOMINAL PAIN UPPER
     Dosage: UNK
     Dates: start: 20090101
  7. PACLITAXEL [Suspect]
     Indication: BREAST CANCER METASTATIC
     Dosage: 175 MG/M2, OTHER
     Route: 042
     Dates: start: 20100706, end: 20101214

REACTIONS (1)
  - PNEUMONIA [None]
